FAERS Safety Report 4368926-5 (Version None)
Quarter: 2004Q2

REPORT INFORMATION
  Report Type: 
  Country: None (occurrence: None)
  Receive Date: 20040602
  Receipt Date: 20040602
  Transmission Date: 20050107
  Serious: Yes (Death, Hospitalization)
  Sender: FDA-Public Use
  Company Number: None

PATIENT
  Sex: Female
  Weight: 45 kg

DRUGS (3)
  1. CAMPATH [Suspect]
     Indication: ACUTE MYELOID LEUKAEMIA
     Dosage: 20 MG IV QD X 5
     Route: 042
     Dates: start: 20030206
  2. MELPHALAN [Suspect]
     Dosage: 48 MG IV QD X 5
     Route: 042
     Dates: start: 20030211
  3. FLUDARABINE PHOSPHATE [Concomitant]

REACTIONS (2)
  - ACUTE RESPIRATORY DISTRESS SYNDROME [None]
  - PNEUMONIA [None]
